FAERS Safety Report 9155562 (Version 1)
Quarter: 2013Q1

REPORT INFORMATION
  Report Type: Spontaneous
  Country: US (occurrence: US)
  Receive Date: 20130311
  Receipt Date: 20130311
  Transmission Date: 20140127
  Serious: Yes (Other)
  Sender: FDA-Public Use
  Company Number: US-GLAXOSMITHKLINE-A1015327A

PATIENT
  Age: 27 Year
  Sex: Female

DRUGS (1)
  1. WELLBUTRIN [Suspect]
     Dosage: 150MG TWICE PER DAY
     Dates: start: 1997, end: 1998

REACTIONS (5)
  - Deafness [Unknown]
  - Tinnitus [Unknown]
  - Skin ulcer [Not Recovered/Not Resolved]
  - Weight increased [Unknown]
  - Overweight [Unknown]
